FAERS Safety Report 25338684 (Version 1)
Quarter: 2025Q2

REPORT INFORMATION
  Report Type: Spontaneous
  Country: DE (occurrence: DE)
  Receive Date: 20250520
  Receipt Date: 20250520
  Transmission Date: 20250717
  Serious: Yes (Disabling)
  Sender: SK LIFE SCIENCE
  Company Number: DE-DCGMA-25205067

PATIENT

DRUGS (2)
  1. XCOPRI [Suspect]
     Active Substance: CENOBAMATE
     Indication: Temporal lobe epilepsy
     Dosage: DAILY DOSE: 200 MG EVERY 1 DAY
     Route: 048
     Dates: start: 202303, end: 202403
  2. LAMOTRIGINE [Concomitant]
     Active Substance: LAMOTRIGINE
     Indication: Temporal lobe epilepsy
     Dosage: 50-0-50 MGDAILY DOSE: 100 MG EVERY 1 DAY
     Dates: start: 2022

REACTIONS (6)
  - Myalgia [Not Recovered/Not Resolved]
  - Arthralgia [Not Recovered/Not Resolved]
  - Musculoskeletal stiffness [Recovering/Resolving]
  - Arthralgia [Recovering/Resolving]
  - Haemangioma [Unknown]
  - Gait disturbance [Recovering/Resolving]
